FAERS Safety Report 13341614 (Version 1)
Quarter: 2017Q1

REPORT INFORMATION
  Report Type: Spontaneous
  Country: US (occurrence: US)
  Receive Date: 20170316
  Receipt Date: 20170316
  Transmission Date: 20170428
  Serious: No
  Sender: FDA-Public Use
  Company Number: US-ENDO PHARMACEUTICALS INC-2016-006363

PATIENT
  Age: 56 Year
  Sex: Female
  Weight: 54.02 kg

DRUGS (5)
  1. XIAFLEX [Suspect]
     Active Substance: COLLAGENASE CLOSTRIDIUM HISTOLYTICUM
     Dosage: 4TH INJECTION UNK HAND/FINGER/ JOINT
     Route: 065
     Dates: start: 20160907
  2. XIAFLEX [Suspect]
     Active Substance: COLLAGENASE CLOSTRIDIUM HISTOLYTICUM
     Dosage: 2ND INJECTION UNK HAND/FINGER/ JOINT
     Route: 065
     Dates: start: 20160615
  3. XIAFLEX [Suspect]
     Active Substance: COLLAGENASE CLOSTRIDIUM HISTOLYTICUM
     Dosage: 1ST INJECTION UNK HAND/FINGER/ JOINT
     Route: 065
     Dates: start: 20160420
  4. XIAFLEX [Suspect]
     Active Substance: COLLAGENASE CLOSTRIDIUM HISTOLYTICUM
     Dosage: 3RD INJECTION UNK HAND/FINGER/ JOINT
     Route: 065
     Dates: start: 20160713
  5. XIAFLEX [Suspect]
     Active Substance: COLLAGENASE CLOSTRIDIUM HISTOLYTICUM
     Indication: DUPUYTREN^S CONTRACTURE
     Dosage: FIFTH INJECTION, UNK  HAND/FINGER/ JOINT
     Route: 065
     Dates: start: 20161012

REACTIONS (2)
  - Product quality issue [Unknown]
  - Drug ineffective [Unknown]

NARRATIVE: CASE EVENT DATE: 20161014
